FAERS Safety Report 8480270-3 (Version None)
Quarter: 2012Q2

REPORT INFORMATION
  Report Type: 
  Country: None (occurrence: None)
  Receive Date: 20120629
  Receipt Date: 20120620
  Transmission Date: 20120825
  Serious: Yes (Hospitalization)
  Sender: FDA-Public Use
  Company Number: US-ASTRAZENECA-2012SE41428

PATIENT
  Age: 82 Year
  Sex: Female

DRUGS (8)
  1. NEXIUM [Suspect]
     Route: 048
  2. SPIRIVA [Concomitant]
  3. VITAMIN D [Concomitant]
  4. NIFEDIPINE [Concomitant]
  5. PREDNISONE TAB [Concomitant]
  6. ALLOPURINOL [Concomitant]
  7. CRESTOR [Suspect]
     Indication: BLOOD CHOLESTEROL ABNORMAL
     Route: 048
     Dates: start: 20120201, end: 20120301
  8. CETAPRIL [Concomitant]

REACTIONS (2)
  - ABDOMINAL PAIN [None]
  - VOMITING [None]
